FAERS Safety Report 17830868 (Version 1)
Quarter: 2020Q2

REPORT INFORMATION
  Report Type: Report from Study
  Country: US (occurrence: US)
  Receive Date: 20200527
  Receipt Date: 20200527
  Transmission Date: 20200714
  Serious: Yes (Other)
  Sender: FDA-Public Use
  Company Number: US-SHIRE-US202017294

PATIENT
  Sex: Male
  Weight: 55 kg

DRUGS (1)
  1. TEDUGLUTIDE [Suspect]
     Active Substance: TEDUGLUTIDE
     Indication: SHORT-BOWEL SYNDROME
     Dosage: UNK
     Route: 065

REACTIONS (2)
  - Large intestine polyp [Recovered/Resolved]
  - Rectal adenoma [Recovered/Resolved]

NARRATIVE: CASE EVENT DATE: 20180725
